FAERS Safety Report 15679154 (Version 1)
Quarter: 2018Q4

REPORT INFORMATION
  Report Type: Spontaneous
  Country: DE (occurrence: DE)
  Receive Date: 20181203
  Receipt Date: 20181203
  Transmission Date: 20190205
  Serious: Yes (Other)
  Sender: FDA-Public Use
  Company Number: DE-TEVA-2018-DE-981277

PATIENT
  Age: 55 Year
  Sex: Male

DRUGS (4)
  1. INSULIN ASPART [Concomitant]
     Active Substance: INSULIN ASPART
     Route: 065
  2. CIPROFLOXACIN. [Suspect]
     Active Substance: CIPROFLOXACIN
     Indication: PROSTATITIS
     Dosage: 1000 MILLIGRAM DAILY;
     Route: 048
  3. INSULIN GLARGIN [Concomitant]
     Active Substance: INSULIN GLARGINE
     Route: 065
  4. METOPROLOL. [Concomitant]
     Active Substance: METOPROLOL
     Route: 065

REACTIONS (1)
  - Aortic aneurysm [Unknown]

NARRATIVE: CASE EVENT DATE: 20181102
